FAERS Safety Report 5700583-5 (Version None)
Quarter: 2008Q2

REPORT INFORMATION
  Report Type: 
  Country: None (occurrence: None)
  Receive Date: 20080407
  Receipt Date: 20080331
  Transmission Date: 20081010
  Serious: Yes (Other)
  Sender: FDA-Public Use
  Company Number: 2008SP006277

PATIENT
  Age: 58 Year
  Sex: Male

DRUGS (1)
  1. NASONEX [Suspect]
     Indication: MULTIPLE ALLERGIES
     Dosage: NAS
     Route: 045
     Dates: start: 19980101

REACTIONS (1)
  - CATARACT [None]
